FAERS Safety Report 14948661 (Version 2)
Quarter: 2018Q2

REPORT INFORMATION
  Report Type: Spontaneous
  Country: TR (occurrence: TR)
  Receive Date: 20180529
  Receipt Date: 20180619
  Transmission Date: 20180711
  Serious: Yes (Other)
  Sender: FDA-Public Use
  Company Number: TR-PFIZER INC-2018214428

PATIENT
  Age: 13 Year
  Sex: Female

DRUGS (3)
  1. SALINE /00075401/ [Suspect]
     Active Substance: SODIUM CHLORIDE
     Indication: MENINGITIS
     Dosage: UNK (INFUSION)
     Route: 042
  2. VANCOMYCIN HCL [Suspect]
     Active Substance: VANCOMYCIN HYDROCHLORIDE
     Indication: MENINGITIS
     Dosage: UNK (INFUSION THERAPY)
     Route: 042
  3. ACYCLOVIR /00587301/ [Suspect]
     Active Substance: ACYCLOVIR
     Indication: MENINGITIS
     Dosage: UNK (INFUSION THERAPY)
     Route: 042

REACTIONS (2)
  - Dermatitis bullous [Unknown]
  - Extravasation [Unknown]
